FAERS Safety Report 9785483 (Version 4)
Quarter: 2014Q3

REPORT INFORMATION
  Report Type: Spontaneous
  Country: US (occurrence: US)
  Receive Date: 20131227
  Receipt Date: 20140902
  Transmission Date: 20150326
  Serious: Yes (Hospitalization, Other)
  Sender: FDA-Public Use
  Company Number: US-009507513-1312USA011292

PATIENT
  Sex: Female

DRUGS (1)
  1. NUVARING [Suspect]
     Active Substance: ETHINYL ESTRADIOL\ETONOGESTREL
     Indication: MENORRHAGIA
     Dosage: UNK
     Route: 067
     Dates: start: 20081013, end: 20081226

REACTIONS (5)
  - Deep vein thrombosis [Unknown]
  - Pulmonary embolism [Unknown]
  - Sarcoidosis [Unknown]
  - Off label use [Unknown]
  - Glucose tolerance impaired [Unknown]

NARRATIVE: CASE EVENT DATE: 20081226
